FAERS Safety Report 11190273 (Version 2)
Quarter: 2015Q2

REPORT INFORMATION
  Report Type: Spontaneous
  Country: ES (occurrence: ES)
  Receive Date: 20150615
  Receipt Date: 20150618
  Transmission Date: 20150821
  Serious: Yes (Other)
  Sender: FDA-Public Use
  Company Number: ES-GILEAD-2015-0158298

PATIENT
  Age: 46 Year
  Sex: Male
  Weight: 103 kg

DRUGS (1)
  1. VIREAD [Suspect]
     Active Substance: TENOFOVIR DISOPROXIL FUMARATE
     Indication: HEPATITIS B
     Dosage: 245 MG, UNK
     Route: 048
     Dates: start: 201108

REACTIONS (1)
  - Anterograde amnesia [Unknown]

NARRATIVE: CASE EVENT DATE: 201401
